FAERS Safety Report 18317886 (Version 1)
Quarter: 2020Q3

REPORT INFORMATION
  Report Type: Spontaneous
  Country: US (occurrence: US)
  Receive Date: 20200918
  Receipt Date: 20200918
  Transmission Date: 20201103
  Serious: Yes (Death, Other)
  Sender: FDA-Public Use
  Company Number: None

PATIENT
  Age: 5 Decade
  Sex: Male

DRUGS (2)
  1. LOPINAVIR [Suspect]
     Active Substance: LOPINAVIR
     Indication: COVID-19
     Dates: start: 2020
  2. RITONAVIR. [Suspect]
     Active Substance: RITONAVIR
     Indication: COVID-19
     Dates: start: 2020

REACTIONS (6)
  - Diabetic ketoacidosis [None]
  - Lung assist device therapy [None]
  - Acute myocardial infarction [None]
  - Respiratory failure [None]
  - Product use in unapproved indication [None]
  - Product use issue [None]
